FAERS Safety Report 15652029 (Version 1)
Quarter: 2018Q4

REPORT INFORMATION
  Report Type: Spontaneous
  Country: HU (occurrence: HU)
  Receive Date: 20181123
  Receipt Date: 20181123
  Transmission Date: 20190205
  Serious: Yes (Other)
  Sender: FDA-Public Use
  Company Number: HU-AMGEN-HUNSP2018134505

PATIENT
  Age: 70 Year
  Sex: Male

DRUGS (2)
  1. XGEVA [Suspect]
     Active Substance: DENOSUMAB
     Indication: BREAST CANCER
     Dosage: UNK
     Route: 065
     Dates: start: 201606, end: 201806
  2. XGEVA [Suspect]
     Active Substance: DENOSUMAB
     Indication: METASTASES TO BONE

REACTIONS (7)
  - Breast cancer male [Unknown]
  - Noninfective gingivitis [Not Recovered/Not Resolved]
  - Bone marrow disorder [Unknown]
  - Periodontitis [Unknown]
  - Cachexia [Unknown]
  - Bone cancer [Unknown]
  - Jaw disorder [Unknown]

NARRATIVE: CASE EVENT DATE: 20180810
